FAERS Safety Report 19052292 (Version 4)
Quarter: 2021Q2

REPORT INFORMATION
  Report Type: Report from Study
  Country: None (occurrence: NL)
  Receive Date: 20210324
  Receipt Date: 20210522
  Transmission Date: 20210717
  Serious: Yes (Hospitalization)
  Sender: FDA-Public Use
  Company Number: NL-ABBVIE-18S-114-2512493-00

PATIENT
  Age: 83 Year
  Sex: Female
  Weight: 49.7 kg

DRUGS (16)
  1. DUODOPA [Suspect]
     Active Substance: CARBIDOPA\LEVODOPA
     Dosage: 16 HOUR ADMINISTRATION ED 3 TO 4 TIMES A DAY.
     Route: 050
  2. LINSEED OIL [Concomitant]
     Active Substance: HERBALS\LINSEED OIL
     Indication: GASTROINTESTINAL DISORDER
  3. DUODOPA [Suspect]
     Active Substance: CARBIDOPA\LEVODOPA
     Dosage: MD: 11.0 ML, CD: 4.1 ML/H , ED: 0.5 ML, REMAINS AT 16 HOURS
     Route: 050
  4. LEVODOPA/CARBIDOPA [Concomitant]
     Active Substance: CARBIDOPA\LEVODOPA
     Route: 048
  5. DUODOPA [Suspect]
     Active Substance: CARBIDOPA\LEVODOPA
     Dosage: MD 11.0 ML CD: 3.0 ML ED: 1.8 ML, 16 HOUR ADMINISTRATION
     Route: 050
  6. DUODOPA [Suspect]
     Active Substance: CARBIDOPA\LEVODOPA
     Dosage: INCREASED CD WITH 0.1
     Route: 050
  7. LEVODOPA/CARBIDOPA [Concomitant]
     Active Substance: CARBIDOPA\LEVODOPA
     Indication: PARKINSON^S DISEASE
     Route: 048
  8. DUODOPA [Suspect]
     Active Substance: CARBIDOPA\LEVODOPA
     Dosage: MD: 11.0 ML CD: 3.7 ML/H ED: 2.0 ML, REMAINS AT 16 HOURS
     Route: 050
  9. DUODOPA [Suspect]
     Active Substance: CARBIDOPA\LEVODOPA
     Dosage: MD: 11.0 ML CD: 3.9 ML/H ED: 0.5 ML
     Route: 050
  10. DUODOPA [Suspect]
     Active Substance: CARBIDOPA\LEVODOPA
     Indication: PARKINSON^S DISEASE
     Route: 050
     Dates: start: 20180407
  11. DUODOPA [Suspect]
     Active Substance: CARBIDOPA\LEVODOPA
     Dosage: MD 11 CD 3.2 ED 2.0
     Route: 050
  12. DUODOPA [Suspect]
     Active Substance: CARBIDOPA\LEVODOPA
     Dosage: MORNING DOSE 1.0 ML; CONTINUOUS DOSE 3.4 ML/HR; EXTRA DOSE 2.0?ML
     Route: 050
  13. DUODOPA [Suspect]
     Active Substance: CARBIDOPA\LEVODOPA
     Dosage: MD: 11.0 ML, CD: 4.4 ML/H , ED: 0.5 ML
     Route: 050
  14. DUODOPA [Suspect]
     Active Substance: CARBIDOPA\LEVODOPA
     Dosage: MD: 11.0 ML, CD: 4.6 ML/H , ED: 2 ML
     Route: 050
  15. DUODOPA [Suspect]
     Active Substance: CARBIDOPA\LEVODOPA
     Dosage: MD: 11.0 ML CD: 3.6 ML /H ED: 2.0 ML
     Route: 050
  16. DUODOPA [Suspect]
     Active Substance: CARBIDOPA\LEVODOPA
     Dosage: MD: 11.0 ML, CD: 4.2 ML/H , ED: 0.5 ML, REMAINS AT 16 HOURS
     Route: 050

REACTIONS (42)
  - Musculoskeletal stiffness [Not Recovered/Not Resolved]
  - Respiratory disorder [Not Recovered/Not Resolved]
  - Loss of personal independence in daily activities [Not Recovered/Not Resolved]
  - General physical health deterioration [Unknown]
  - Muscle rigidity [Not Recovered/Not Resolved]
  - Fear [Unknown]
  - On and off phenomenon [Not Recovered/Not Resolved]
  - Hyperkinesia [Not Recovered/Not Resolved]
  - Weight abnormal [Not Recovered/Not Resolved]
  - Weight gain poor [Recovering/Resolving]
  - Saliva altered [Not Recovered/Not Resolved]
  - Abnormal dreams [Recovered/Resolved]
  - Fatigue [Not Recovered/Not Resolved]
  - Unevaluable event [Not Recovered/Not Resolved]
  - Depressed mood [Not Recovered/Not Resolved]
  - Anxiety [Not Recovered/Not Resolved]
  - Device issue [Unknown]
  - Cardiac disorder [Not Recovered/Not Resolved]
  - Gastrointestinal motility disorder [Recovering/Resolving]
  - Stress [Not Recovered/Not Resolved]
  - Malaise [Recovering/Resolving]
  - Unevaluable event [Recovering/Resolving]
  - Extra dose administered [Unknown]
  - Restlessness [Not Recovered/Not Resolved]
  - Dyspnoea [Not Recovered/Not Resolved]
  - Nausea [Not Recovered/Not Resolved]
  - Dyskinesia [Not Recovered/Not Resolved]
  - Drug ineffective [Unknown]
  - Therapeutic product effect variable [Unknown]
  - Speech disorder [Not Recovered/Not Resolved]
  - Emotional distress [Not Recovered/Not Resolved]
  - Fall [Not Recovered/Not Resolved]
  - Fear [Not Recovered/Not Resolved]
  - Abnormal dreams [Not Recovered/Not Resolved]
  - Wrong technique in device usage process [Unknown]
  - Negative thoughts [Not Recovered/Not Resolved]
  - Tension [Recovered/Resolved]
  - Tremor [Recovering/Resolving]
  - On and off phenomenon [Unknown]
  - Bradykinesia [Not Recovered/Not Resolved]
  - Weight gain poor [Not Recovered/Not Resolved]
  - Abnormal faeces [Not Recovered/Not Resolved]

NARRATIVE: CASE EVENT DATE: 2020
